FAERS Safety Report 19802904 (Version 1)
Quarter: 2021Q3

REPORT INFORMATION
  Report Type: Spontaneous
  Country: US (occurrence: US)
  Receive Date: 20210902
  Receipt Date: 20210902
  Transmission Date: 20211014
  Serious: Yes (Hospitalization)
  Sender: FDA-Public Use
  Company Number: None

PATIENT
  Age: 69 Year
  Sex: Female

DRUGS (1)
  1. BOSENTAN 125 MG TABLES 60/BO (PAR): [Suspect]
     Active Substance: BOSENTAN
     Indication: PULMONARY HYPERTENSION
     Route: 048
     Dates: start: 20190610

REACTIONS (6)
  - Presyncope [None]
  - Delirium [None]
  - Troponin abnormal [None]
  - Cardiomyopathy [None]
  - Lethargy [None]
  - Carbon dioxide abnormal [None]

NARRATIVE: CASE EVENT DATE: 20210831
